FAERS Safety Report 7974048-4 (Version None)
Quarter: 2011Q4

REPORT INFORMATION
  Report Type: 
  Country: None (occurrence: None)
  Receive Date: 20111213
  Receipt Date: 20111207
  Transmission Date: 20120403
  Serious: Yes (Other)
  Sender: FDA-Public Use
  Company Number: JP-GLAXOSMITHKLINE-B0768056A

PATIENT
  Age: 87 Year
  Sex: Female

DRUGS (3)
  1. NEOAMIYU [Concomitant]
     Route: 042
  2. ZOVIRAX [Suspect]
     Indication: HERPES ZOSTER
     Route: 042
  3. MAINTENANCE MEDIUM [Concomitant]
     Route: 042

REACTIONS (1)
  - RHABDOMYOLYSIS [None]
